FAERS Safety Report 11699858 (Version 1)
Quarter: 2015Q4

REPORT INFORMATION
  Report Type: Spontaneous
  Country: US (occurrence: None)
  Receive Date: 20151104
  Receipt Date: 20151104
  Transmission Date: 20160304
  Serious: Yes (Hospitalization)
  Sender: FDA-Public Use
  Company Number: None

PATIENT
  Age: 82 Year
  Sex: Male
  Weight: 75 kg

DRUGS (1)
  1. MORPHINE [Suspect]
     Active Substance: MORPHINE
     Indication: PAIN
     Route: 048
     Dates: start: 20130319, end: 20150301

REACTIONS (5)
  - Acute kidney injury [None]
  - Sedation [None]
  - Fluid overload [None]
  - Cardiac failure [None]
  - Altered state of consciousness [None]

NARRATIVE: CASE EVENT DATE: 20150501
